FAERS Safety Report 22232050 (Version 1)
Quarter: 2023Q2

REPORT INFORMATION
  Report Type: Spontaneous
  Country: US (occurrence: None)
  Receive Date: 20230420
  Receipt Date: 20230420
  Transmission Date: 20230721
  Serious: No
  Sender: FDA-Public Use
  Company Number: US-ROCHE-3144955

PATIENT
  Sex: Female

DRUGS (2)
  1. ESBRIET [Suspect]
     Active Substance: PIRFENIDONE
     Indication: Idiopathic pulmonary fibrosis
     Dosage: (3) 267 MG TABLETS WITH MEALS THREE TIMES DAILY ;ONGOING: YES
     Route: 048
     Dates: start: 20220718
  2. ESBRIET [Suspect]
     Active Substance: PIRFENIDONE
     Dosage: (2) 267 MG TABLETS THREE TIMES DAILY ;ONGOING: NO
     Route: 048
     Dates: start: 2022

REACTIONS (3)
  - Arthralgia [Not Recovered/Not Resolved]
  - Headache [Not Recovered/Not Resolved]
  - Arthralgia [Not Recovered/Not Resolved]

NARRATIVE: CASE EVENT DATE: 20220101
